FAERS Safety Report 21034743 (Version 1)
Quarter: 2022Q3

REPORT INFORMATION
  Report Type: Spontaneous
  Country: US (occurrence: None)
  Receive Date: 20220701
  Receipt Date: 20220701
  Transmission Date: 20221026
  Serious: Yes (Death)
  Sender: FDA-Public Use
  Company Number: None

PATIENT
  Age: 66 Year
  Sex: Male

DRUGS (1)
  1. CAPECITABINE [Suspect]
     Active Substance: CAPECITABINE
     Indication: Malignant peritoneal neoplasm
     Dosage: 3 TABLETS BY MOUTH TWICE DAILY ON DAYS 1-14 OF EVERY 21 DAY CYC? ?
     Route: 048
     Dates: start: 20210728, end: 20220628

REACTIONS (1)
  - Malignant peritoneal neoplasm [None]

NARRATIVE: CASE EVENT DATE: 20220628
